FAERS Safety Report 21519671 (Version 2)
Quarter: 2022Q4

REPORT INFORMATION
  Report Type: Other
  Country: CL (occurrence: None)
  Receive Date: 20221028
  Receipt Date: 20221124
  Transmission Date: 20230113
  Serious: Yes (Hospitalization)
  Sender: FDA-Public Use
  Company Number: CL-ROCHE-3204509

PATIENT
  Sex: Female

DRUGS (4)
  1. PERJETA [Suspect]
     Active Substance: PERTUZUMAB
     Indication: HER2 positive breast cancer
     Dosage: FREQUENCY WERE NOT INFORMED
     Route: 042
     Dates: start: 202209
  2. HERCEPTIN [Suspect]
     Active Substance: TRASTUZUMAB
     Indication: HER2 positive breast cancer
     Dosage: FREQUENCY WERE NOT INFORMED
     Route: 058
     Dates: start: 202209
  3. DOCETAXEL [Suspect]
     Active Substance: DOCETAXEL
     Indication: HER2 positive breast cancer
     Dosage: DOSE AND FREQUENCY WERE NOT INFORMED
     Route: 065
     Dates: start: 202209
  4. ONDANSETRON [Concomitant]
     Active Substance: ONDANSETRON
     Indication: HER2 positive breast cancer
     Dosage: DOSE AND FREQUENCY WERE NOT INFORMED

REACTIONS (3)
  - Device related infection [Recovered/Resolved]
  - Pyrexia [Unknown]
  - Asthenia [Unknown]

NARRATIVE: CASE EVENT DATE: 20220929
